FAERS Safety Report 9687866 (Version 1)
Quarter: 2013Q4

REPORT INFORMATION
  Report Type: Report from Study
  Country: GB (occurrence: GB)
  Receive Date: 20131114
  Receipt Date: 20131114
  Transmission Date: 20140711
  Serious: Yes (Hospitalization)
  Sender: FDA-Public Use
  Company Number: GB-ROCHE-1303102

PATIENT
  Sex: Female
  Weight: 74 kg

DRUGS (3)
  1. RITUXIMAB [Suspect]
     Indication: RHEUMATOID ARTHRITIS
     Dosage: LAST DOSE PRIOR TO SAE ON 25/FEB/2013.
     Route: 065
     Dates: start: 20110712
  2. AZATHIOPRINE [Concomitant]
  3. HYDROXYCHLOROQUINE [Concomitant]

REACTIONS (2)
  - Fall [Unknown]
  - Rib fracture [Unknown]
